FAERS Safety Report 5964306-7 (Version None)
Quarter: 2008Q4

REPORT INFORMATION
  Report Type: 
  Country: None (occurrence: None)
  Receive Date: 20081124
  Receipt Date: 20081118
  Transmission Date: 20090506
  Serious: Yes (Death, Hospitalization)
  Sender: FDA-Public Use
  Company Number: ES-PFIZER INC-2008088784

PATIENT
  Age: 44 Year
  Sex: Male

DRUGS (7)
  1. TRANKIMAZIN [Suspect]
     Indication: DEPRESSION
     Route: 048
     Dates: start: 20070927
  2. METHADONE HCL [Suspect]
     Indication: DRUG DEPENDENCE
     Dosage: DAILY DOSE:80MG
     Route: 048
     Dates: start: 20070927
  3. RIBAVIRIN [Suspect]
     Indication: HEPATITIS C
     Route: 048
     Dates: start: 20080121
  4. MYAMBUTOL [Suspect]
     Indication: PULMONARY TUBERCULOSIS
     Route: 048
     Dates: start: 20080710
  5. PEGASYS [Suspect]
     Indication: HEPATITIS C
     Dosage: DAILY DOSE:180MCG
     Route: 058
     Dates: start: 20080121
  6. REXER [Suspect]
     Indication: DEPRESSION
     Route: 048
     Dates: start: 20070927
  7. RIFATER [Concomitant]
     Route: 048
     Dates: start: 20080710

REACTIONS (4)
  - ACIDOSIS [None]
  - MALAISE [None]
  - NAUSEA [None]
  - VOMITING [None]
